FAERS Safety Report 7309139-4 (Version None)
Quarter: 2011Q1

REPORT INFORMATION
  Report Type: 
  Country: None (occurrence: None)
  Receive Date: 20110223
  Receipt Date: 20110218
  Transmission Date: 20110831
  Serious: Yes (Life-Threatening)
  Sender: FDA-Public Use
  Company Number: PHHY2011GB13209

PATIENT
  Age: 83 Year
  Sex: Female

DRUGS (15)
  1. DOCUSATE [Concomitant]
  2. FUROSEMIDE [Concomitant]
  3. CELLUVISC [Concomitant]
  4. PREGABALIN [Concomitant]
  5. PHENELZINE SULFATE [Suspect]
     Route: 048
  6. ALENDRONIC ACID [Concomitant]
  7. MACROGOL [Concomitant]
  8. PRIADEL [Concomitant]
  9. IPRATROPIUM BROMIDE [Concomitant]
  10. LEVOTHYROXINE SODIUM [Concomitant]
  11. ALBUTEROL [Concomitant]
  12. TRAMADOL HCL [Suspect]
     Route: 048
     Dates: start: 20110119, end: 20110121
  13. CALCICHEW D3 [Concomitant]
  14. PARACETAMOL [Concomitant]
  15. SENNA [Concomitant]

REACTIONS (3)
  - HYPOXIA [None]
  - RESPIRATORY DEPRESSION [None]
  - DEPRESSED LEVEL OF CONSCIOUSNESS [None]
